FAERS Safety Report 13472469 (Version 1)
Quarter: 2017Q2

REPORT INFORMATION
  Report Type: Spontaneous
  Country: US (occurrence: US)
  Receive Date: 20170422
  Receipt Date: 20170422
  Transmission Date: 20170830
  Serious: Yes (Disabling, Other)
  Sender: FDA-Public Use
  Company Number: None

PATIENT
  Age: 47 Year
  Sex: Male
  Weight: 117 kg

DRUGS (18)
  1. MIRTAZAPINE. [Concomitant]
     Active Substance: MIRTAZAPINE
  2. OMEPRAZOLE. [Concomitant]
     Active Substance: OMEPRAZOLE
  3. OXYCODONE [Concomitant]
     Active Substance: OXYCODONE
  4. TIZANIDINE. [Concomitant]
     Active Substance: TIZANIDINE
  5. CLONAZAEPAM [Concomitant]
  6. DIURETICS [Concomitant]
     Active Substance: UNSPECIFIED INGREDIENT
  7. MULTIVITAMIN [Concomitant]
     Active Substance: VITAMINS
  8. CYMBALTA [Concomitant]
     Active Substance: DULOXETINE HYDROCHLORIDE
  9. MOTRIN [Concomitant]
     Active Substance: IBUPROFEN
  10. FLEXERIL [Concomitant]
     Active Substance: CYCLOBENZAPRINE HYDROCHLORIDE
  11. GABAPENTIN. [Concomitant]
     Active Substance: GABAPENTIN
  12. ROCEPHIN [Suspect]
     Active Substance: CEFTRIAXONE SODIUM
     Indication: INFECTION
     Route: 042
  13. ALLOPURINOL. [Concomitant]
     Active Substance: ALLOPURINOL
  14. OLANZANAPINE [Concomitant]
  15. DAPTOMYCIN. [Suspect]
     Active Substance: DAPTOMYCIN
  16. ADDERALL [Concomitant]
     Active Substance: AMPHETAMINE ASPARTATE\AMPHETAMINE SULFATE\DEXTROAMPHETAMINE SACCHARATE\DEXTROAMPHETAMINE SULFATE
  17. TUMS [Concomitant]
     Active Substance: CALCIUM CARBONATE
  18. TOPAMAX [Concomitant]
     Active Substance: TOPIRAMATE

REACTIONS (9)
  - Gait disturbance [None]
  - Electromyogram abnormal [None]
  - Polyneuropathy [None]
  - Back pain [None]
  - Local swelling [None]
  - Paraesthesia [None]
  - Deformity [None]
  - Hypotonia [None]
  - Kyphoscoliosis [None]

NARRATIVE: CASE EVENT DATE: 20160101
